FAERS Safety Report 24227318 (Version 2)
Quarter: 2024Q3

REPORT INFORMATION
  Report Type: Spontaneous
  Country: US (occurrence: US)
  Receive Date: 20240820
  Receipt Date: 20240912
  Transmission Date: 20241016
  Serious: No
  Sender: CSL BEHRING
  Company Number: US-BEH-2024177363

PATIENT
  Age: 76 Year
  Sex: Male

DRUGS (2)
  1. HIZENTRA [Suspect]
     Active Substance: HUMAN IMMUNOGLOBULIN G
     Indication: Chronic inflammatory demyelinating polyradiculoneuropathy
     Dosage: 32 G, QW, 160ML-THREE 10G PFS AND ONE 2G PFS) SQ EVERY 7 DAYS
     Route: 058
  2. HIZENTRA [Suspect]
     Active Substance: HUMAN IMMUNOGLOBULIN G
     Dosage: 16G TWO TIMES A WEEK
     Route: 058

REACTIONS (2)
  - Nausea [Not Recovered/Not Resolved]
  - Therapy change [Not Recovered/Not Resolved]
